FAERS Safety Report 24231644 (Version 4)
Quarter: 2024Q4

REPORT INFORMATION
  Report Type: Spontaneous
  Country: JP (occurrence: JP)
  Receive Date: 20240821
  Receipt Date: 20241119
  Transmission Date: 20250114
  Serious: Yes (Other)
  Sender: GENMAB
  Company Number: JP-GENMAB-2024-02975

PATIENT
  Age: 43 Year
  Sex: Male

DRUGS (1)
  1. EPKINLY [Suspect]
     Active Substance: EPCORITAMAB-BYSP
     Indication: Diffuse large B-cell lymphoma
     Dosage: 48 MILLIGRAM, ADMINISTERED FOR UP TO CYCLE 2, AND WAS ONGOING
     Route: 058
     Dates: start: 20240624

REACTIONS (11)
  - Hypogammaglobulinaemia [Unknown]
  - Hypokalaemia [Unknown]
  - Hypoalbuminaemia [Unknown]
  - Alanine aminotransferase increased [Unknown]
  - Hyponatraemia [Unknown]
  - Cytomegalovirus infection [Unknown]
  - Blood creatinine increased [Unknown]
  - Arthralgia [Unknown]
  - Myalgia [Unknown]
  - Nausea [Unknown]
  - Injection site reaction [Unknown]

NARRATIVE: CASE EVENT DATE: 20240101
